FAERS Safety Report 12871606 (Version 3)
Quarter: 2016Q4

REPORT INFORMATION
  Report Type: Report from Study
  Country: US (occurrence: US)
  Receive Date: 20161021
  Receipt Date: 20161216
  Transmission Date: 20170207
  Serious: Yes (Other)
  Sender: FDA-Public Use
  Company Number: US-AMGEN-USASL2016143558

PATIENT
  Age: 57 Year
  Sex: Female

DRUGS (2)
  1. ENBREL [Suspect]
     Active Substance: ETANERCEPT
     Indication: RHEUMATOID ARTHRITIS
     Dosage: 50 MG, QWK
     Route: 065
  2. PREDNISONE. [Concomitant]
     Active Substance: PREDNISONE
     Dosage: 5 MG, QD

REACTIONS (9)
  - Pneumonia [Unknown]
  - Respiratory tract congestion [Unknown]
  - Arthralgia [Unknown]
  - Alopecia [Unknown]
  - Wheezing [Unknown]
  - Nodule [Unknown]
  - Joint swelling [Unknown]
  - Nasopharyngitis [Unknown]
  - Malaise [Not Recovered/Not Resolved]
